FAERS Safety Report 18252330 (Version 2)
Quarter: 2021Q3

REPORT INFORMATION
  Report Type: Spontaneous
  Country: US (occurrence: US)
  Receive Date: 20200910
  Receipt Date: 20210913
  Transmission Date: 20211014
  Serious: No
  Sender: FDA-Public Use
  Company Number: US-FARMAPROD-202006-0818

PATIENT
  Sex: Male

DRUGS (2)
  1. BANDAGE CONTACT LENS [Concomitant]
     Active Substance: DEVICE
  2. OXERVATE [Suspect]
     Active Substance: CENEGERMIN-BKBJ
     Indication: PRODUCT USED FOR UNKNOWN INDICATION
     Route: 047

REACTIONS (2)
  - Eye pain [Unknown]
  - Disease recurrence [Unknown]
